FAERS Safety Report 22089400 (Version 9)
Quarter: 2025Q3

REPORT INFORMATION
  Report Type: Report from Study
  Country: US (occurrence: US)
  Receive Date: 20230313
  Receipt Date: 20250818
  Transmission Date: 20251020
  Serious: Yes (Hospitalization, Other)
  Sender: TAKEDA
  Company Number: US-TAKEDA-2023TUS025760

PATIENT
  Age: 0 Year
  Sex: Male

DRUGS (6)
  1. ADVATE [Suspect]
     Active Substance: ANTIHEMOPHILIC FACTOR, HUMAN RECOMBINANT
     Indication: Haemorrhage
  2. ADVATE [Suspect]
     Active Substance: ANTIHEMOPHILIC FACTOR, HUMAN RECOMBINANT
  3. ADVATE [Suspect]
     Active Substance: ANTIHEMOPHILIC FACTOR, HUMAN RECOMBINANT
  4. ADVATE [Suspect]
     Active Substance: ANTIHEMOPHILIC FACTOR, HUMAN RECOMBINANT
  5. ADVATE [Suspect]
     Active Substance: ANTIHEMOPHILIC FACTOR, HUMAN RECOMBINANT
  6. ADVATE [Suspect]
     Active Substance: ANTIHEMOPHILIC FACTOR, HUMAN RECOMBINANT

REACTIONS (14)
  - Muscle haemorrhage [Unknown]
  - Haemarthrosis [Not Recovered/Not Resolved]
  - Tongue haemorrhage [Unknown]
  - Lip haemorrhage [Not Recovered/Not Resolved]
  - Joint swelling [Recovering/Resolving]
  - Tongue biting [Unknown]
  - Fall [Recovered/Resolved]
  - Gait disturbance [Recovered/Resolved]
  - Oral mucosal eruption [Unknown]
  - Injury [Unknown]
  - Upper limb fracture [Unknown]
  - Lip injury [Unknown]
  - Forearm fracture [Unknown]
  - Rash [Unknown]

NARRATIVE: CASE EVENT DATE: 20230308
